FAERS Safety Report 21160726 (Version 1)
Quarter: 2022Q3

REPORT INFORMATION
  Report Type: Report from Study
  Country: IN (occurrence: IN)
  Receive Date: 20220802
  Receipt Date: 20220802
  Transmission Date: 20221026
  Serious: Yes (Death)
  Sender: FDA-Public Use
  Company Number: IN-NOVARTISPH-NVSC2022IN036321

PATIENT
  Age: 52 Year
  Sex: Female

DRUGS (1)
  1. RIBOCICLIB [Suspect]
     Active Substance: RIBOCICLIB
     Indication: Breast cancer metastatic
     Dosage: 600 MG, QD (START DATE: 2022)
     Route: 065

REACTIONS (4)
  - Death [Fatal]
  - Arthralgia [Unknown]
  - Glossodynia [Unknown]
  - Headache [Unknown]

NARRATIVE: CASE EVENT DATE: 20220701
